FAERS Safety Report 9569645 (Version 2)
Quarter: 2013Q3

REPORT INFORMATION
  Report Type: Spontaneous
  Country: US (occurrence: US)
  Receive Date: 20130930
  Receipt Date: 20130930
  Transmission Date: 20140515
  Serious: No
  Sender: FDA-Public Use
  Company Number: US-AMGEN-USASP2013065991

PATIENT
  Age: 55 Year
  Sex: Female
  Weight: 58.96 kg

DRUGS (1)
  1. ENBREL [Suspect]
     Indication: RHEUMATOID ARTHRITIS
     Dosage: 50 MG, ONCE A WEEK
     Route: 058

REACTIONS (3)
  - Condition aggravated [Unknown]
  - Red blood cell sedimentation rate increased [Unknown]
  - Arthralgia [Unknown]
